FAERS Safety Report 8159206-0 (Version None)
Quarter: 2012Q1

REPORT INFORMATION
  Report Type: 
  Country: None (occurrence: None)
  Receive Date: 20120217
  Receipt Date: 20120208
  Transmission Date: 20120608
  Serious: Yes (Hospitalization)
  Sender: FDA-Public Use
  Company Number: AUR-APL-2012-00971

PATIENT
  Age: 72 Year
  Sex: Male

DRUGS (8)
  1. CITALOPRAM HYDROBROMIDE [Concomitant]
  2. LEVETIRACETAM [Suspect]
     Indication: PRODUCT USED FOR UNKNOWN INDICATION
     Dosage: 500 MG (250 MG, 2 IN 1 D)
  3. INDAPAMIDE [Concomitant]
  4. DIGOXIN [Concomitant]
  5. SIMVASTATIN [Concomitant]
  6. CODEINE SULFATE [Concomitant]
  7. AMITRIPTYLINE HCL [Concomitant]
  8. LAMOTRIGINE [Concomitant]

REACTIONS (11)
  - PARANOIA [None]
  - PERSECUTORY DELUSION [None]
  - HALLUCINATION [None]
  - CONVULSION [None]
  - SOMNOLENCE [None]
  - MOBILITY DECREASED [None]
  - ASTHENIA [None]
  - DYSPHONIA [None]
  - DELIRIUM [None]
  - INCONTINENCE [None]
  - DEPRESSION [None]
